FAERS Safety Report 6568990-9 (Version None)
Quarter: 2010Q1

REPORT INFORMATION
  Report Type: 
  Country: None (occurrence: None)
  Receive Date: 20100203
  Receipt Date: 20091013
  Transmission Date: 20100710
  Serious: Yes (Hospitalization)
  Sender: FDA-Public Use
  Company Number: US-JNJFOC-20091004674

PATIENT
  Age: 36 Year
  Sex: Male

DRUGS (13)
  1. INTELENCE [Suspect]
     Indication: HIV INFECTION
     Route: 048
  2. PREZISTA [Suspect]
     Indication: HIV INFECTION
     Route: 048
  3. RITONAVIR [Suspect]
     Indication: HIV INFECTION
     Route: 048
  4. RALTEGRAVIR [Concomitant]
     Indication: HIV INFECTION
     Route: 048
  5. ALLEGRA D 24 HOUR [Concomitant]
  6. AMBIEN [Concomitant]
  7. PROSCAR [Concomitant]
  8. XANAX [Concomitant]
  9. ACYCLOVIR [Concomitant]
  10. OXANDRIN [Concomitant]
  11. ASPIRIN [Concomitant]
  12. VICODIN [Concomitant]
  13. AUGMENTIN [Concomitant]

REACTIONS (1)
  - CONVULSION [None]
